FAERS Safety Report 7472986-2 (Version None)
Quarter: 2011Q2

REPORT INFORMATION
  Report Type: 
  Country: None (occurrence: None)
  Receive Date: 20110511
  Receipt Date: 20110505
  Transmission Date: 20111010
  Serious: Yes (Other)
  Sender: FDA-Public Use
  Company Number: PHHY2011TR38386

PATIENT

DRUGS (1)
  1. GLEEVEC [Suspect]
     Route: 064

REACTIONS (2)
  - HEART DISEASE CONGENITAL [None]
  - DRUG EXPOSURE DURING PREGNANCY [None]
